FAERS Safety Report 9169308 (Version 1)
Quarter: 2013Q1

REPORT INFORMATION
  Report Type: Other
  Country: US (occurrence: US)
  Receive Date: 20130318
  Receipt Date: 20130318
  Transmission Date: 20140127
  Serious: Yes (Other)
  Sender: FDA-Public Use
  Company Number: US-ACTELION-A-CH2013-80812

PATIENT
  Age: 29 Day
  Sex: Male
  Weight: 3.25 kg

DRUGS (3)
  1. VENTAVIS [Suspect]
     Indication: PULMONARY ARTERIAL HYPERTENSION
     Dosage: 1.25 ?G, UNK
     Route: 055
  2. SILDENAFIL [Concomitant]
     Dosage: 0.4 MG/KG, Q6HRS
  3. NITRIC OXIDE [Concomitant]
     Dosage: 40 PPM, UNK

REACTIONS (4)
  - Haemodynamic instability [Unknown]
  - Labile blood pressure [Unknown]
  - Irritability [Unknown]
  - Pulmonary function test decreased [Unknown]
